FAERS Safety Report 18868947 (Version 3)
Quarter: 2021Q1

REPORT INFORMATION
  Report Type: Spontaneous
  Country: US (occurrence: US)
  Receive Date: 20210210
  Receipt Date: 20210319
  Transmission Date: 20210420
  Serious: No
  Sender: FDA-Public Use
  Company Number: US-SA-2021SA039800

PATIENT
  Age: 61 Year
  Sex: Male

DRUGS (3)
  1. PREDNISONE. [Concomitant]
     Active Substance: PREDNISONE
     Dosage: UNK
     Route: 065
  2. CLARITINE [Concomitant]
     Active Substance: LORATADINE
     Route: 065
  3. DUPIXENT [Suspect]
     Active Substance: DUPILUMAB
     Indication: NASAL POLYPS
     Dosage: 300 MG, QOW
     Route: 058
     Dates: start: 202009

REACTIONS (10)
  - Discomfort [Unknown]
  - Rash pustular [Unknown]
  - Rash macular [Unknown]
  - Ear discomfort [Unknown]
  - Paranasal sinus discomfort [Unknown]
  - Herpes zoster [Unknown]
  - Skin burning sensation [Unknown]
  - Rash [Unknown]
  - Nasal polypectomy [Unknown]
  - Rash pruritic [Not Recovered/Not Resolved]

NARRATIVE: CASE EVENT DATE: 202101
